FAERS Safety Report 23779225 (Version 1)
Quarter: 2024Q2

REPORT INFORMATION
  Report Type: Spontaneous
  Country: US (occurrence: None)
  Receive Date: 20240424
  Receipt Date: 20240424
  Transmission Date: 20240716
  Serious: No
  Sender: FDA-Public Use
  Company Number: None

PATIENT
  Age: 74 Year
  Sex: Male
  Weight: 67.5 kg

DRUGS (4)
  1. DEVICE [Suspect]
     Active Substance: DEVICE
     Indication: Actinic keratosis
     Dates: start: 20240422, end: 20240422
  2. LOSARTAN [Concomitant]
     Active Substance: LOSARTAN
  3. potassium and hydrochlorothiazide [Concomitant]
  4. AMINOLEVULINIC ACID HYDROCHLORIDE [Suspect]
     Active Substance: AMINOLEVULINIC ACID HYDROCHLORIDE

REACTIONS (3)
  - Chills [None]
  - Abdominal pain upper [None]
  - Vomiting [None]

NARRATIVE: CASE EVENT DATE: 20240423
